FAERS Safety Report 18642697 (Version 2)
Quarter: 2020Q4

REPORT INFORMATION
  Report Type: Spontaneous
  Country: FR (occurrence: FR)
  Receive Date: 20201221
  Receipt Date: 20201230
  Transmission Date: 20210114
  Serious: Yes (Death, Other)
  Sender: FDA-Public Use
  Company Number: FR-PFIZER INC-2020493663

PATIENT
  Age: 79 Year
  Sex: Male

DRUGS (4)
  1. BEVACIZUMAB. [Suspect]
     Active Substance: BEVACIZUMAB
     Indication: ADENOCARCINOMA OF COLON
     Dosage: UNK
     Dates: start: 2017
  2. FLUOROURACIL. [Concomitant]
     Active Substance: FLUOROURACIL
     Indication: ADENOCARCINOMA OF COLON
     Dosage: UNK
     Dates: start: 2017
  3. FOLINIC ACID [Concomitant]
     Active Substance: LEUCOVORIN
     Indication: ADENOCARCINOMA OF COLON
     Dosage: UNK
     Dates: start: 2017
  4. FOLFIRI [Suspect]
     Active Substance: FLUOROURACIL\IRINOTECAN\LEUCOVORIN
     Indication: ADENOCARCINOMA OF COLON
     Dosage: UNK
     Dates: start: 2017

REACTIONS (1)
  - Dysaesthesia [Fatal]

NARRATIVE: CASE EVENT DATE: 2017
